FAERS Safety Report 23988629 (Version 1)
Quarter: 2024Q2

REPORT INFORMATION
  Report Type: Spontaneous
  Country: PL (occurrence: PL)
  Receive Date: 20240619
  Receipt Date: 20240619
  Transmission Date: 20240716
  Serious: Yes (Other)
  Sender: FDA-Public Use
  Company Number: PL-009507513-2405POL009396

PATIENT
  Age: 70 Year
  Sex: Female
  Weight: 52 kg

DRUGS (3)
  1. CARBOPLATIN [Suspect]
     Active Substance: CARBOPLATIN
     Indication: Squamous cell carcinoma of head and neck
     Dosage: UNK,FIRST CYCLE OF TREATMENT
     Route: 065
     Dates: start: 20221003, end: 20230125
  2. FLUOROURACIL SODIUM [Suspect]
     Active Substance: FLUOROURACIL SODIUM
     Indication: Squamous cell carcinoma of head and neck
     Dosage: UNK,FIRST CYCLE OF TREATMENT
     Route: 065
     Dates: start: 20221003, end: 20230125
  3. KEYTRUDA [Suspect]
     Active Substance: PEMBROLIZUMAB
     Indication: Squamous cell carcinoma of head and neck
     Dosage: 200 MILLIGRAM, 3 TIMES A WEEK
     Route: 042
     Dates: start: 20221003

REACTIONS (2)
  - Hepatitis B [Unknown]
  - Rash [Recovered/Resolved]

NARRATIVE: CASE EVENT DATE: 20230101
